FAERS Safety Report 16799096 (Version 1)
Quarter: 2019Q3

REPORT INFORMATION
  Report Type: Spontaneous
  Country: US (occurrence: US)
  Receive Date: 20190912
  Receipt Date: 20190912
  Transmission Date: 20191005
  Serious: Yes (Hospitalization, Other)
  Sender: FDA-Public Use
  Company Number: US-ALEMBIC PHARMACUETICALS LIMITED-2019SCAL000627

PATIENT

DRUGS (2)
  1. QUETIAPINE FUMARATE. [Suspect]
     Active Substance: QUETIAPINE FUMARATE
     Indication: PRODUCT USED FOR UNKNOWN INDICATION
     Dosage: UNK
  2. VALPROIC ACID [VALPROATE SODIUM] [Suspect]
     Active Substance: VALPROATE SODIUM
     Indication: PRODUCT USED FOR UNKNOWN INDICATION
     Dosage: UNK

REACTIONS (8)
  - Hypertonia [Recovering/Resolving]
  - Hyporesponsive to stimuli [Recovering/Resolving]
  - Mental status changes [Recovering/Resolving]
  - Mutism [Recovering/Resolving]
  - Bedridden [Recovering/Resolving]
  - Lethargy [Recovering/Resolving]
  - Unresponsive to stimuli [Recovering/Resolving]
  - Catatonia [Recovering/Resolving]
